FAERS Safety Report 8974122 (Version 1)
Quarter: 2012Q4

REPORT INFORMATION
  Report Type: Spontaneous
  Country: US (occurrence: None)
  Receive Date: 20121217
  Receipt Date: 20121217
  Transmission Date: 20130627
  Serious: Yes (Hospitalization)
  Sender: FDA-Public Use
  Company Number: None

PATIENT
  Age: 62 Year
  Sex: Male
  Weight: 80.1 kg

DRUGS (5)
  1. HYDROCHLOROTHIAZIDE\LISINOPRIL [Suspect]
     Indication: HYPERTENSION
     Route: 048
     Dates: end: 20120818
  2. HYDROCHLOROTHIAZIDE\LISINOPRIL [Suspect]
     Indication: DIABETES MELLITUS
     Route: 048
     Dates: end: 20120818
  3. FAMOTIDINE [Suspect]
     Route: 042
  4. DIPHENHYDRAMINE [Suspect]
     Route: 042
  5. METHYLPREDNISOLONE [Suspect]
     Route: 042

REACTIONS (1)
  - Angioedema [None]
